FAERS Safety Report 9657383 (Version 1)
Quarter: 2013Q4

REPORT INFORMATION
  Report Type: Spontaneous
  Country: US (occurrence: US)
  Receive Date: 20131030
  Receipt Date: 20131030
  Transmission Date: 20140711
  Serious: Yes (Death)
  Sender: FDA-Public Use
  Company Number: US-PFIZER INC-2013308668

PATIENT
  Age: 42 Year
  Sex: Male

DRUGS (1)
  1. CAMPTOSAR [Suspect]
     Indication: BRAIN NEOPLASM MALIGNANT
     Dosage: 500 MG, UNK

REACTIONS (1)
  - Death [Fatal]
